FAERS Safety Report 7346146-X (Version None)
Quarter: 2011Q1

REPORT INFORMATION
  Report Type: 
  Country: None (occurrence: None)
  Receive Date: 20110301
  Receipt Date: 20110218
  Transmission Date: 20110831
  Serious: Yes (Other)
  Sender: FDA-Public Use
  Company Number: 027868

PATIENT
  Age: 82 Year
  Sex: Male

DRUGS (7)
  1. LANSOPRAZOLE [Suspect]
     Indication: PROPHYLAXIS
     Dates: start: 20101201
  2. AMLODIPINE [Concomitant]
  3. METFORMIN [Concomitant]
  4. LEVETIRACETAM [Suspect]
     Indication: CONVULSION
     Dosage: (750 MG QD ORAL)
     Route: 048
     Dates: start: 20101201
  5. LISINOPRIL [Concomitant]
  6. DEXAMETHASONE [Concomitant]
  7. SIMVASTATIN [Concomitant]

REACTIONS (1)
  - WHITE BLOOD CELL COUNT DECREASED [None]
